FAERS Safety Report 5357148-7 (Version None)
Quarter: 2007Q2

REPORT INFORMATION
  Report Type: 
  Country: None (occurrence: None)
  Receive Date: 20070612
  Receipt Date: 20070612
  Transmission Date: 20071010
  Serious: Yes (Hospitalization)
  Sender: FDA-Public Use
  Company Number: None

PATIENT
  Age: 87 Year
  Sex: Male

DRUGS (1)
  1. WARFARIN SODIUM [Suspect]
     Indication: DEEP VEIN THROMBOSIS
     Dosage: 9MG EVERY DAY PO
     Route: 048
     Dates: start: 20070101, end: 20070516

REACTIONS (2)
  - DRUG TOXICITY [None]
  - INTERNATIONAL NORMALISED RATIO ABNORMAL [None]
